FAERS Safety Report 5008498-5 (Version None)
Quarter: 2006Q2

REPORT INFORMATION
  Report Type: 
  Country: None (occurrence: None)
  Receive Date: 20060522
  Receipt Date: 20060522
  Transmission Date: 20061013
  Serious: No
  Sender: FDA-Public Use
  Company Number: None

PATIENT
  Age: 35 Year
  Sex: Female
  Weight: 46.2669 kg

DRUGS (2)
  1. PAXIL [Suspect]
     Indication: ANXIETY DISORDER
     Dosage: 5 MG 1PILL PER DAY PO
     Route: 048
     Dates: start: 20020501, end: 20040130
  2. PAXIL [Suspect]
     Indication: DEPRESSION
     Dosage: 5 MG 1PILL PER DAY PO
     Route: 048
     Dates: start: 20020501, end: 20040130

REACTIONS (3)
  - AMNESIA [None]
  - COGNITIVE DISORDER [None]
  - DYSLEXIA [None]
